FAERS Safety Report 5202736-1 (Version None)
Quarter: 2007Q1

REPORT INFORMATION
  Report Type: 
  Country: None (occurrence: None)
  Receive Date: 20070109
  Receipt Date: 20061228
  Transmission Date: 20070707
  Serious: Yes (Hospitalization, Other)
  Sender: FDA-Public Use
  Company Number: US-PFIZER INC-2007000708

PATIENT
  Sex: Female
  Weight: 68 kg

DRUGS (8)
  1. DETROL [Suspect]
     Indication: URINARY INCONTINENCE
  2. DETROL LA [Suspect]
     Indication: URINARY INCONTINENCE
  3. TOPROL-XL [Concomitant]
  4. PROTONIX [Concomitant]
  5. CLARINEX [Concomitant]
  6. DIGOXIN [Concomitant]
  7. ARICEPT [Concomitant]
  8. LEXAPRO [Concomitant]

REACTIONS (6)
  - CEREBRAL HAEMORRHAGE [None]
  - DRUG INEFFECTIVE [None]
  - FALL [None]
  - RIB FRACTURE [None]
  - TREMOR [None]
  - WEIGHT DECREASED [None]
